FAERS Safety Report 6882301-0 (Version None)
Quarter: 2010Q3

REPORT INFORMATION
  Report Type: 
  Country: None (occurrence: None)
  Receive Date: 20100729
  Receipt Date: 20090729
  Transmission Date: 20110219
  Serious: No
  Sender: FDA-Public Use
  Company Number: US-MYLANLABS-2009S1002334

PATIENT
  Age: 49 Year
  Sex: Female

DRUGS (10)
  1. SYNTHROID [Suspect]
     Indication: HYPOTHYROIDISM
     Route: 048
     Dates: start: 20070201
  2. LEVOTHYROXINE SODIUM [Suspect]
     Indication: HYPOTHYROIDISM
     Route: 048
  3. LEVOTHYROXINE SODIUM [Suspect]
     Route: 048
  4. LEVOTHYROXINE SODIUM [Suspect]
     Route: 048
  5. LEVOTHYROXINE SODIUM [Suspect]
     Route: 048
     Dates: end: 20090601
  6. ELAVIL [Concomitant]
  7. PREVACID [Concomitant]
  8. LEXAPRO [Concomitant]
  9. ASCORBIC ACID [Concomitant]
  10. VITAMIN D [Concomitant]

REACTIONS (2)
  - REACTION TO DRUG EXCIPIENTS [None]
  - VASCULITIS [None]
